FAERS Safety Report 12817591 (Version 9)
Quarter: 2017Q2

REPORT INFORMATION
  Report Type: Spontaneous
  Country: IT (occurrence: IT)
  Receive Date: 20161006
  Receipt Date: 20170420
  Transmission Date: 20170830
  Serious: Yes (Other)
  Sender: FDA-Public Use
  Company Number: IT-ACCORD-044594

PATIENT
  Age: 36 Year
  Sex: Female
  Weight: 58 kg

DRUGS (2)
  1. FLUOROURACIL. [Suspect]
     Active Substance: FLUOROURACIL
     Indication: COLON CANCER
     Dosage: ALSO RECEIVED 3024 MG CYCLICAL INTRAVENOUSLY
     Route: 041
     Dates: start: 20160825, end: 20160908
  2. OXALIPLATIN. [Suspect]
     Active Substance: OXALIPLATIN
     Indication: COLON CANCER
     Dosage: ALSO RECEIVED 91 MG CYCLICAL, RECEIVED 91 MG TILL 28-OCT-2016, WITHDRAWN, THEN REINTRODUCED.
     Route: 042
     Dates: start: 20160825, end: 20160908

REACTIONS (7)
  - Constipation [Recovered/Resolved]
  - Dysphonia [Recovering/Resolving]
  - Pharyngeal inflammation [Recovering/Resolving]
  - Neutropenia [Recovering/Resolving]
  - Ileus paralytic [Recovered/Resolved]
  - Stomatitis [Recovering/Resolving]
  - Paraesthesia [Not Recovered/Not Resolved]

NARRATIVE: CASE EVENT DATE: 20160910
